FAERS Safety Report 5161142-9 (Version None)
Quarter: 2006Q4

REPORT INFORMATION
  Report Type: 
  Country: None (occurrence: None)
  Receive Date: 20061130
  Receipt Date: 20061122
  Transmission Date: 20070319
  Serious: Yes (Disabling)
  Sender: FDA-Public Use
  Company Number: 2006AP05568

PATIENT
  Age: 49 Year
  Sex: Female
  Weight: 55 kg

DRUGS (8)
  1. PROPOFOL [Suspect]
     Indication: EPIDERMOID CYST EXCISION
     Dosage: INDUCTION DOSE
     Route: 042
     Dates: start: 20030416, end: 20030416
  2. PROPOFOL [Suspect]
     Indication: ANAESTHESIA
     Dosage: INDUCTION DOSE
     Route: 042
     Dates: start: 20030416, end: 20030416
  3. PROPOFOL [Suspect]
     Dosage: MAINTENANCE
     Route: 042
     Dates: start: 20030416, end: 20030416
  4. PROPOFOL [Suspect]
     Dosage: MAINTENANCE
     Route: 042
     Dates: start: 20030416, end: 20030416
  5. ATROPINE [Concomitant]
     Route: 030
     Dates: start: 20030416, end: 20030416
  6. MIDAZOLAM [Concomitant]
     Indication: INDUCTION OF ANAESTHESIA
     Route: 042
     Dates: start: 20030416, end: 20030416
  7. VECURONIUM BROMIDE [Concomitant]
     Indication: INDUCTION OF ANAESTHESIA
     Route: 042
     Dates: start: 20030416, end: 20030416
  8. FENTANYL [Concomitant]
     Indication: INDUCTION OF ANAESTHESIA
     Route: 042
     Dates: start: 20030416, end: 20030416

REACTIONS (1)
  - RETINAL ARTERY OCCLUSION [None]
